FAERS Safety Report 6451836-7 (Version None)
Quarter: 2009Q4

REPORT INFORMATION
  Report Type: 
  Country: None (occurrence: None)
  Receive Date: 20091117
  Receipt Date: 20091103
  Transmission Date: 20100525
  Serious: Yes (Death, Life-Threatening)
  Sender: FDA-Public Use
  Company Number: 1000010047

PATIENT
  Age: 72 Year
  Sex: Male

DRUGS (11)
  1. ESCITALOPRAM OXALATE [Suspect]
     Dosage: 10 MG (10 MG, 1 IN 1 D), ORAL
     Route: 048
     Dates: start: 20070917, end: 20070917
  2. CLOMIPRAMIN-NEURAXPHARM [Concomitant]
  3. GODAMED [Concomitant]
  4. NACOM [Concomitant]
  5. NACOM RETARD [Concomitant]
  6. PANTOZOL [Concomitant]
  7. REQUIP [Concomitant]
  8. STILNOX [Concomitant]
  9. TRAZODONE HCL [Concomitant]
  10. TORSEMIDE [Concomitant]
  11. XIMOVAN [Concomitant]

REACTIONS (3)
  - COMPLETED SUICIDE [None]
  - DROWNING [None]
  - SUICIDAL IDEATION [None]
